FAERS Safety Report 15017163 (Version 1)
Quarter: 2018Q2

REPORT INFORMATION
  Report Type: Spontaneous
  Country: US (occurrence: US)
  Receive Date: 20180615
  Receipt Date: 20180615
  Transmission Date: 20180711
  Serious: No
  Sender: FDA-Public Use
  Company Number: US-HORIZON-PEN-0425-2018

PATIENT
  Age: 52 Year
  Sex: Female

DRUGS (1)
  1. PENNSAID [Suspect]
     Active Substance: DICLOFENAC SODIUM
     Indication: PRODUCT USED FOR UNKNOWN INDICATION
     Dates: start: 201805, end: 201805

REACTIONS (4)
  - Hypertension [Unknown]
  - Headache [Unknown]
  - Abdominal pain upper [Unknown]
  - Ulcer [Unknown]
